FAERS Safety Report 14967670 (Version 4)
Quarter: 2018Q3

REPORT INFORMATION
  Report Type: Report from Study
  Country: BR (occurrence: BR)
  Receive Date: 20180604
  Receipt Date: 20180815
  Transmission Date: 20181010
  Serious: Yes (Hospitalization)
  Sender: FDA-Public Use
  Company Number: BR-ROCHE-1986745

PATIENT
  Age: 52 Year
  Sex: Female
  Weight: 54.7 kg

DRUGS (70)
  1. BEVACIZUMAB. [Suspect]
     Active Substance: BEVACIZUMAB
     Indication: COLORECTAL CANCER METASTATIC
     Dosage: 15?30 MINUTE ON DAY 1?MOST RECENT DOSE PRIOR TO EVENT  ON  18/APR/2018  (273.5 MG) AT 11.45
     Route: 042
     Dates: start: 20170717
  2. ZOFRAN [Concomitant]
     Active Substance: ONDANSETRON HYDROCHLORIDE
     Route: 065
     Dates: start: 20170821, end: 20170821
  3. ZOFRAN [Concomitant]
     Active Substance: ONDANSETRON HYDROCHLORIDE
     Route: 065
     Dates: start: 20170904, end: 20170904
  4. METRONIDAZOLE. [Concomitant]
     Active Substance: METRONIDAZOLE
     Route: 065
     Dates: start: 20170829, end: 20170830
  5. METRONIDAZOLE. [Concomitant]
     Active Substance: METRONIDAZOLE
     Route: 065
     Dates: start: 20170503, end: 20170503
  6. POTASSIUM CHLORIDE. [Concomitant]
     Active Substance: POTASSIUM CHLORIDE
     Indication: HYPOKALAEMIA
     Route: 065
     Dates: start: 20170904, end: 20170908
  7. FLUOROURACIL. [Suspect]
     Active Substance: FLUOROURACIL
     Indication: COLORECTAL CANCER METASTATIC
     Dosage: 23/AUG/2017? LAST DOSE ADMINISTERED PRIOR TO EVENT (2400 MG)
     Route: 042
     Dates: start: 20170717
  8. CAPECITABINE. [Suspect]
     Active Substance: CAPECITABINE
     Route: 048
     Dates: start: 20180417, end: 20180501
  9. CAPECITABINE. [Suspect]
     Active Substance: CAPECITABINE
     Route: 048
     Dates: start: 20180502, end: 20180515
  10. RANITIDINE. [Concomitant]
     Active Substance: RANITIDINE
     Route: 065
     Dates: start: 20170807, end: 20170807
  11. EMEND [Concomitant]
     Active Substance: APREPITANT
     Route: 065
     Dates: start: 20170904, end: 20170904
  12. IMOSEC [Concomitant]
     Active Substance: LOPERAMIDE
     Route: 065
     Dates: start: 20170731, end: 20170802
  13. METRONIDAZOLE. [Concomitant]
     Active Substance: METRONIDAZOLE
     Route: 065
     Dates: start: 20170901, end: 20170904
  14. METRONIDAZOLE. [Concomitant]
     Active Substance: METRONIDAZOLE
     Route: 065
     Dates: start: 20170506, end: 20170514
  15. ENALAPRIL [Concomitant]
     Active Substance: ENALAPRIL
     Indication: HYPERTENSION
     Route: 065
     Dates: start: 20180615
  16. METOCLOPRAMIDE. [Concomitant]
     Active Substance: METOCLOPRAMIDE
     Route: 065
     Dates: start: 20180505, end: 20180505
  17. DEXAMETHASONE. [Concomitant]
     Active Substance: DEXAMETHASONE
     Route: 065
     Dates: start: 20170904, end: 20170904
  18. DIPYRONE [Concomitant]
     Active Substance: DIPYRONE
     Route: 065
     Dates: start: 20170811, end: 20170814
  19. IBUPROFEN. [Concomitant]
     Active Substance: IBUPROFEN
     Indication: PHARYNGITIS
     Route: 065
     Dates: start: 20170811, end: 20170815
  20. LUFTAL [Concomitant]
     Active Substance: DIMETHICONE
     Route: 065
     Dates: start: 20170818
  21. ZOFRAN [Concomitant]
     Active Substance: ONDANSETRON HYDROCHLORIDE
     Route: 065
     Dates: start: 20170807, end: 20170807
  22. CIPROFLOXACIN. [Concomitant]
     Active Substance: CIPROFLOXACIN
     Route: 065
     Dates: start: 20180502, end: 20180505
  23. LOPERAMIDE [Concomitant]
     Active Substance: LOPERAMIDE
     Indication: DIARRHOEA
     Route: 065
     Dates: start: 20171002, end: 20171113
  24. METOCLOPRAMIDE. [Concomitant]
     Active Substance: METOCLOPRAMIDE
     Route: 065
     Dates: start: 20180506, end: 20180506
  25. ONDANSETRON [Concomitant]
     Active Substance: ONDANSETRON
     Route: 065
     Dates: start: 20180505, end: 20180505
  26. CAPECITABINE. [Suspect]
     Active Substance: CAPECITABINE
     Indication: COLORECTAL CANCER METASTATIC
     Dosage: DOSE OF LAST STUDY DRUG ADMINISTERED (1156 MG) ON 17/APR/2018 SHE RECEIVED MOST RECENT DOSE
     Route: 048
     Dates: start: 20171201
  27. RANITIDINE. [Concomitant]
     Active Substance: RANITIDINE
     Route: 065
     Dates: start: 20170821, end: 20170821
  28. DIPYRONE [Concomitant]
     Active Substance: DIPYRONE
     Route: 065
     Dates: start: 20170712, end: 20170716
  29. DIPYRONE [Concomitant]
     Active Substance: DIPYRONE
     Route: 065
     Dates: start: 20170830, end: 20170830
  30. DIPYRONE [Concomitant]
     Active Substance: DIPYRONE
     Route: 065
     Dates: start: 20170831, end: 20170831
  31. CIPROFLOXACIN. [Concomitant]
     Active Substance: CIPROFLOXACIN
     Route: 065
     Dates: start: 20170829, end: 20170830
  32. BROMOPRIDE [Concomitant]
     Active Substance: BROMOPRIDE
     Route: 065
     Dates: start: 20170831, end: 20170831
  33. BUSCOPAN COMPOSITUM [Concomitant]
     Indication: DIARRHOEA
     Route: 065
     Dates: start: 20170727, end: 20170802
  34. SCOPOLAMINE [Concomitant]
     Active Substance: SCOPOLAMINE
     Route: 065
     Dates: start: 20180425
  35. POTASSIUM CHLORIDE. [Concomitant]
     Active Substance: POTASSIUM CHLORIDE
     Route: 065
     Dates: start: 20180510, end: 20180514
  36. SIMETHICONE (DIMETHICONE) [Concomitant]
     Active Substance: DIMETHICONE
     Route: 065
     Dates: start: 20170830, end: 20170831
  37. FOLINIC ACID [Suspect]
     Active Substance: LEUCOVORIN
     Indication: COLORECTAL CANCER METASTATIC
     Dosage: 21/AUG/2017? LAST DOSE ADMINISTERED PRIOR TO EVENT (400 MG)
     Route: 042
     Dates: start: 20170717
  38. FLORATIL [Concomitant]
     Indication: DIARRHOEA
     Route: 065
     Dates: start: 20170727, end: 20170730
  39. IMOSEC [Concomitant]
     Active Substance: LOPERAMIDE
     Route: 065
     Dates: start: 20180515, end: 20180529
  40. METRONIDAZOLE. [Concomitant]
     Active Substance: METRONIDAZOLE
     Route: 065
     Dates: start: 20170831, end: 20170831
  41. ONDANSETRON [Concomitant]
     Active Substance: ONDANSETRON
     Indication: NAUSEA
     Route: 065
     Dates: start: 20180503, end: 20180503
  42. ONDANSETRON [Concomitant]
     Active Substance: ONDANSETRON
     Route: 065
     Dates: start: 20180506, end: 20180506
  43. IMOSEC [Concomitant]
     Active Substance: LOPERAMIDE
     Route: 065
     Dates: start: 20170803, end: 20170820
  44. OMEPRAZOLE. [Concomitant]
     Active Substance: OMEPRAZOLE
     Route: 065
     Dates: start: 20170830, end: 20170831
  45. CIPROFLOXACIN. [Concomitant]
     Active Substance: CIPROFLOXACIN
     Indication: DIARRHOEA
     Route: 065
     Dates: start: 20170828, end: 20170828
  46. CIPROFLOXACIN. [Concomitant]
     Active Substance: CIPROFLOXACIN
     Route: 065
     Dates: start: 20170901, end: 20170904
  47. CIPROFLOXACIN. [Concomitant]
     Active Substance: CIPROFLOXACIN
     Route: 065
     Dates: start: 20170831, end: 20170831
  48. CITONEURIN [Concomitant]
     Active Substance: CYANOCOBALAMIN\PYRIDOXINE HYDROCHLORIDE\THIAMINE
     Indication: PERIPHERAL SENSORY NEUROPATHY
     Route: 065
     Dates: start: 20180117
  49. GABAPENTINE [Concomitant]
     Active Substance: GABAPENTIN
     Route: 065
     Dates: start: 20180117, end: 20180215
  50. AMITRIPTYLINE [Concomitant]
     Active Substance: AMITRIPTYLINE
     Route: 065
     Dates: start: 20180725
  51. OXALIPLATIN. [Suspect]
     Active Substance: OXALIPLATIN
     Indication: COLORECTAL CANCER METASTATIC
     Dosage: 21/AUG/2017? LAST DOSE ADMINISTERED PRIOR TO EVENT (400 MG)
     Route: 042
     Dates: start: 20170717
  52. RANITIDINE. [Concomitant]
     Active Substance: RANITIDINE
     Route: 065
     Dates: start: 20170904, end: 20170904
  53. EMEND [Concomitant]
     Active Substance: APREPITANT
     Route: 065
     Dates: start: 20170807, end: 20170807
  54. IMOSEC [Concomitant]
     Active Substance: LOPERAMIDE
     Indication: DIARRHOEA
     Route: 065
     Dates: start: 20170821, end: 20171220
  55. OMEPRAZOLE. [Concomitant]
     Active Substance: OMEPRAZOLE
     Route: 065
     Dates: start: 20170901
  56. BROMOPRIDE [Concomitant]
     Active Substance: BROMOPRIDE
     Route: 065
     Dates: start: 20170830, end: 20170830
  57. ENOXAPARIN [Concomitant]
     Active Substance: ENOXAPARIN
     Route: 065
     Dates: start: 20170829, end: 20170831
  58. LOPERAMIDE [Concomitant]
     Active Substance: LOPERAMIDE
     Route: 065
     Dates: start: 20171218, end: 20171220
  59. METOCLOPRAMIDE. [Concomitant]
     Active Substance: METOCLOPRAMIDE
     Indication: NAUSEA
     Route: 065
     Dates: start: 20180504, end: 20180504
  60. ONDANSETRON [Concomitant]
     Active Substance: ONDANSETRON
     Route: 065
     Dates: start: 20180504, end: 20180504
  61. DEXAMETHASONE. [Concomitant]
     Active Substance: DEXAMETHASONE
     Route: 065
     Dates: start: 20170807, end: 20170807
  62. DEXAMETHASONE. [Concomitant]
     Active Substance: DEXAMETHASONE
     Route: 065
     Dates: start: 20170821, end: 20170821
  63. EMEND [Concomitant]
     Active Substance: APREPITANT
     Route: 065
     Dates: start: 20170821, end: 20170821
  64. FLORATIL [Concomitant]
     Dosage: 2 TABLETS
     Route: 065
     Dates: start: 20170727, end: 20170731
  65. IMOSEC [Concomitant]
     Active Substance: LOPERAMIDE
     Dosage: FOR  DIARRHEA
     Route: 065
     Dates: start: 20171003, end: 20171113
  66. OMEPRAZOLE. [Concomitant]
     Active Substance: OMEPRAZOLE
     Route: 065
     Dates: start: 20170731, end: 20170829
  67. METRONIDAZOLE. [Concomitant]
     Active Substance: METRONIDAZOLE
     Route: 065
     Dates: start: 20170828, end: 20170828
  68. BEPANTOL [Concomitant]
     Indication: PROPHYLAXIS
     Route: 065
     Dates: start: 20180223, end: 20180530
  69. BEPANTOL [Concomitant]
     Route: 065
     Dates: start: 20180531
  70. MORPHINE [Concomitant]
     Active Substance: MORPHINE
     Indication: PAIN IN EXTREMITY
     Route: 065
     Dates: start: 20180725

REACTIONS (2)
  - Abdominal pain [Recovered/Resolved]
  - Colitis [Recovered/Resolved]

NARRATIVE: CASE EVENT DATE: 20170826
